FAERS Safety Report 13436197 (Version 1)
Quarter: 2017Q2

REPORT INFORMATION
  Report Type: Spontaneous
  Country: US (occurrence: US)
  Receive Date: 20170412
  Receipt Date: 20170412
  Transmission Date: 20170830
  Serious: No
  Sender: FDA-Public Use
  Company Number: None

PATIENT
  Age: 50 Year
  Sex: Female

DRUGS (2)
  1. TACROLIMUS CAP 0.5MG [Suspect]
     Active Substance: TACROLIMUS
     Indication: LIVER TRANSPLANT
  2. TACROLIMUS CAP 0.5MG [Suspect]
     Active Substance: TACROLIMUS
     Indication: DRUG THERAPY

REACTIONS (2)
  - Condition aggravated [None]
  - Arthralgia [None]

NARRATIVE: CASE EVENT DATE: 20161001
